FAERS Safety Report 6706193-5 (Version None)
Quarter: 2010Q2

REPORT INFORMATION
  Report Type: 
  Country: None (occurrence: None)
  Receive Date: 20100503
  Receipt Date: 20100421
  Transmission Date: 20101027
  Serious: Yes (Other)
  Sender: FDA-Public Use
  Company Number: NZ-WYE-G03273209

PATIENT
  Sex: Female

DRUGS (2)
  1. VENLAFAXINE HYDROCHLORIDE [Suspect]
     Indication: MAJOR DEPRESSION
     Dosage: 300MG DAILY
     Route: 048
     Dates: start: 20080101
  2. VENLAFAXINE HYDROCHLORIDE [Suspect]
     Dosage: 300MG DAILY
     Route: 048

REACTIONS (10)
  - AGITATION [None]
  - APPETITE DISORDER [None]
  - BODY TEMPERATURE INCREASED [None]
  - CRYING [None]
  - DRUG EXPOSURE VIA BREAST MILK [None]
  - DRUG WITHDRAWAL SYNDROME [None]
  - FEEDING DISORDER NEONATAL [None]
  - INSOMNIA [None]
  - IRRITABILITY [None]
  - PREMATURE BABY [None]
